FAERS Safety Report 5509495-3 (Version None)
Quarter: 2007Q4

REPORT INFORMATION
  Report Type: 
  Country: None (occurrence: None)
  Receive Date: 20071106
  Receipt Date: 20071017
  Transmission Date: 20080405
  Serious: Yes (Life-Threatening)
  Sender: FDA-Public Use
  Company Number: PI-02135

PATIENT
  Age: 42 Year
  Sex: Female

DRUGS (2)
  1. CHLORAPREP ONE-STEP FREPP [Suspect]
     Indication: PREOPERATIVE CARE
     Dosage: 3-ML, ONCE, TOPICAL
     Route: 061
  2. FENTANYL AND VERSAD [Concomitant]

REACTIONS (1)
  - ANAPHYLACTIC REACTION [None]
